FAERS Safety Report 4640145-4 (Version None)
Quarter: 2005Q2

REPORT INFORMATION
  Report Type: 
  Country: None (occurrence: None)
  Receive Date: 20050420
  Receipt Date: 20050111
  Transmission Date: 20051028
  Serious: Yes (Hospitalization)
  Sender: FDA-Public Use
  Company Number: US-MERCK-0501USA01203

PATIENT
  Age: 46 Year
  Sex: Male
  Weight: 86 kg

DRUGS (22)
  1. VIOXX [Suspect]
     Indication: SPONDYLITIS
     Route: 048
     Dates: start: 19990101, end: 20031101
  2. VIOXX [Suspect]
     Route: 048
  3. VIOXX [Suspect]
     Route: 065
  4. VIOXX [Suspect]
     Indication: MONARTHRITIS
     Route: 048
     Dates: start: 19990101, end: 20031101
  5. VIOXX [Suspect]
     Route: 048
  6. VIOXX [Suspect]
     Route: 065
  7. DAYPRO [Concomitant]
     Indication: BACK PAIN
     Route: 065
     Dates: start: 19990101, end: 19991117
  8. DAYPRO [Concomitant]
     Indication: PAIN IN EXTREMITY
     Route: 065
     Dates: start: 19990101, end: 19991117
  9. FLEXERIL [Concomitant]
     Indication: BACK PAIN
     Route: 065
     Dates: start: 19990101, end: 19991117
  10. FLEXERIL [Concomitant]
     Indication: PAIN IN EXTREMITY
     Route: 065
     Dates: start: 19990101, end: 19991117
  11. CORTICOSTEROIDS (UNSPECIFIED) [Concomitant]
     Indication: BACK PAIN
     Route: 065
  12. CELEBREX [Concomitant]
     Indication: BACK PAIN
     Route: 065
     Dates: start: 19991117
  13. CELEBREX [Concomitant]
     Indication: PAIN IN EXTREMITY
     Route: 065
     Dates: start: 19991117
  14. ULTRAM [Concomitant]
     Indication: BACK PAIN
     Route: 065
     Dates: start: 19991203
  15. ULTRAM [Concomitant]
     Route: 065
     Dates: start: 19991203
  16. ULTRAM [Concomitant]
     Indication: PAIN IN EXTREMITY
     Route: 065
     Dates: start: 19991203
  17. ULTRAM [Concomitant]
     Route: 065
     Dates: start: 19991203
  18. FLEXERIL [Concomitant]
     Indication: BACK INJURY
     Route: 065
     Dates: start: 20000317
  19. ZITHROMAX [Concomitant]
     Indication: BRONCHITIS
     Route: 065
     Dates: start: 20001201
  20. LEVAQUIN [Concomitant]
     Indication: BRONCHITIS
     Route: 065
  21. CLARITIN-D [Concomitant]
     Indication: BRONCHITIS
     Route: 065
  22. BETOPTIC [Concomitant]
     Route: 065

REACTIONS (24)
  - ANGINA PECTORIS [None]
  - ASPIRATION [None]
  - BACK INJURY [None]
  - BRONCHITIS [None]
  - CHEST PAIN [None]
  - CHEST WALL PAIN [None]
  - CHONDROSIS [None]
  - CONTUSION [None]
  - CORONARY ARTERY ATHEROSCLEROSIS [None]
  - DYSPNOEA [None]
  - EMOTIONAL DISTRESS [None]
  - GASTROOESOPHAGEAL REFLUX DISEASE [None]
  - GLAUCOMA [None]
  - HYPERCHOLESTEROLAEMIA [None]
  - JOINT SPRAIN [None]
  - LUNG NEOPLASM [None]
  - MUSCLE STRAIN [None]
  - MYOCARDIAL INFARCTION [None]
  - OSTEOARTHRITIS [None]
  - PAIN IN EXTREMITY [None]
  - RASH [None]
  - ROAD TRAFFIC ACCIDENT [None]
  - SARCOIDOSIS [None]
  - SPINAL OSTEOARTHRITIS [None]
